FAERS Safety Report 5982208-7 (Version None)
Quarter: 2008Q4

REPORT INFORMATION
  Report Type: 
  Country: None (occurrence: None)
  Receive Date: 20081208
  Receipt Date: 20081203
  Transmission Date: 20090506
  Serious: Yes (Death)
  Sender: FDA-Public Use
  Company Number: FR-JNJFOC-20081200775

PATIENT
  Sex: Female

DRUGS (12)
  1. RISPERDAL [Suspect]
     Indication: DRUG USE FOR UNKNOWN INDICATION
     Route: 065
  2. CODEINE SUL TAB [Suspect]
     Indication: DRUG USE FOR UNKNOWN INDICATION
     Route: 065
  3. ACETAMINOPHEN [Suspect]
     Indication: DRUG USE FOR UNKNOWN INDICATION
     Route: 065
  4. DEXTROPROPOXYPHENE [Suspect]
     Indication: DRUG USE FOR UNKNOWN INDICATION
     Route: 065
  5. HALDOL [Concomitant]
     Route: 030
  6. ZOLPIDEM [Concomitant]
     Route: 048
  7. REVIA [Concomitant]
     Route: 048
  8. CANNABIS [Concomitant]
     Route: 048
  9. CREON [Concomitant]
     Route: 048
  10. LOXAPINE HCL [Concomitant]
     Route: 048
  11. RIVOTRIL [Concomitant]
     Route: 048
  12. RESIN [Concomitant]
     Route: 065

REACTIONS (1)
  - DEATH [None]
